FAERS Safety Report 19169739 (Version 1)
Quarter: 2021Q2

REPORT INFORMATION
  Report Type: Spontaneous
  Country: US (occurrence: US)
  Receive Date: 20210422
  Receipt Date: 20210422
  Transmission Date: 20210717
  Serious: No
  Sender: FDA-Public Use
  Company Number: US-ASTELLAS-2020US040848

PATIENT
  Age: 26 Year
  Sex: Female

DRUGS (4)
  1. LEXISCAN [Suspect]
     Active Substance: REGADENOSON
     Indication: SCAN MYOCARDIAL PERFUSION
     Dosage: 0.4MG/5ML (VIA PIV), UNKNOWN FREQ.
     Route: 042
     Dates: start: 20201029, end: 20201029
  2. LEXISCAN [Suspect]
     Active Substance: REGADENOSON
     Indication: SCAN MYOCARDIAL PERFUSION
     Dosage: 0.4MG/5ML (VIA PIV), UNKNOWN FREQ.
     Route: 042
     Dates: start: 20201029, end: 20201029
  3. LEXISCAN [Suspect]
     Active Substance: REGADENOSON
     Indication: SCAN MYOCARDIAL PERFUSION
     Dosage: 0.4MG/5ML (VIA PIV), UNKNOWN FREQ.
     Route: 042
     Dates: start: 20201029, end: 20201029
  4. LEXISCAN [Suspect]
     Active Substance: REGADENOSON
     Indication: SCAN MYOCARDIAL PERFUSION
     Dosage: 0.4MG/5ML (VIA PIV), UNKNOWN FREQ.
     Route: 042
     Dates: start: 20201029, end: 20201029

REACTIONS (4)
  - Incorrect product administration duration [Unknown]
  - Tachycardia [Recovered/Resolved]
  - Hyperventilation [Recovered/Resolved]
  - Muscle spasms [Recovered/Resolved]

NARRATIVE: CASE EVENT DATE: 20201029
